FAERS Safety Report 16776349 (Version 1)
Quarter: 2019Q3

REPORT INFORMATION
  Report Type: Spontaneous
  Country: ES (occurrence: ES)
  Receive Date: 20190905
  Receipt Date: 20190905
  Transmission Date: 20191005
  Serious: Yes (Other)
  Sender: FDA-Public Use
  Company Number: ES-MYLANLABS-2019M1083021

PATIENT
  Age: 75 Year
  Sex: Male

DRUGS (4)
  1. LOSARTAN. [Concomitant]
     Active Substance: LOSARTAN
  2. PARACETAMOL [Concomitant]
     Active Substance: ACETAMINOPHEN
  3. ACETYLSALICYLIC ACID [Concomitant]
     Active Substance: ASPIRIN
  4. OMEPRAZOLE. [Suspect]
     Active Substance: OMEPRAZOLE
     Indication: PRODUCT USED FOR UNKNOWN INDICATION
     Dosage: UNK
     Route: 065

REACTIONS (2)
  - Ocular myasthenia [Recovering/Resolving]
  - Myasthenia gravis [Recovering/Resolving]
